FAERS Safety Report 4735306-X (Version None)
Quarter: 2005Q3

REPORT INFORMATION
  Report Type: 
  Country: None (occurrence: None)
  Receive Date: 20050805
  Receipt Date: 20031120
  Transmission Date: 20060218
  Serious: Yes (Death, Other)
  Sender: FDA-Public Use
  Company Number: FR-BRISTOL-MYERS SQUIBB COMPANY-12440731

PATIENT
  Age: 50 Year
  Sex: Male
  Weight: 80 kg

DRUGS (6)
  1. ATAZANAVIR [Suspect]
     Indication: HIV INFECTION
  2. AZT [Suspect]
     Indication: HIV INFECTION
     Dosage: TEMPORARILY DISCONTINUED/PATIENT DIED 03-NOV-2003
  3. BACTRIM DS [Concomitant]
     Indication: PROPHYLAXIS
     Dosage: ONGOING PRIOR TO DEATH/DATE OF DEATH 03-NOV-2003
     Route: 048
     Dates: start: 20010404
  4. BECILAN [Concomitant]
     Indication: DEFICIENCY ANAEMIA
     Dosage: ONGOING PRIOR TO DEATH/DATE OF DEATH 03-NOV-2003
     Route: 042
     Dates: start: 20030924
  5. BENERVA [Concomitant]
     Indication: DEFICIENCY ANAEMIA
     Dosage: ONGOING PRIOR TO DEATH/DATE OF DEATH 03-NOV-2003
     Route: 042
     Dates: start: 20030924
  6. CERNEVIT-12 [Concomitant]
     Indication: DEFICIENCY ANAEMIA
     Dosage: ONE BOTTLE/ONGOING PRIOR TO DEATH/DATE OF DEATH 03-NOV-2003
     Route: 042
     Dates: start: 20030924

REACTIONS (2)
  - DEFICIENCY ANAEMIA [None]
  - SUDDEN DEATH [None]
